FAERS Safety Report 7432791-X (Version None)
Quarter: 2011Q2

REPORT INFORMATION
  Report Type: 
  Country: None (occurrence: None)
  Receive Date: 20110422
  Receipt Date: 20110418
  Transmission Date: 20111010
  Serious: Yes (Hospitalization)
  Sender: FDA-Public Use
  Company Number: Z0008581C

PATIENT
  Age: 73 Year
  Sex: Female
  Weight: 63.6 kg

DRUGS (8)
  1. IMODIUM [Concomitant]
     Indication: DIARRHOEA
     Dosage: 2MG AS REQUIRED
     Route: 048
     Dates: start: 20110321
  2. MAALOX + MYLANTA [Concomitant]
     Indication: DYSPEPSIA
     Route: 048
     Dates: start: 20110321
  3. MYLICON [Concomitant]
     Indication: FLATULENCE
     Dosage: 80MG AS REQUIRED
     Route: 048
     Dates: start: 20110321
  4. MAGIC MOUTHWASH [Concomitant]
     Indication: PROPHYLAXIS
     Route: 048
     Dates: start: 20110321
  5. LORAZEPAM [Concomitant]
     Indication: NAUSEA
     Dosage: .25MG AS REQUIRED
     Route: 048
     Dates: start: 20110320
  6. PERI-COLACE [Concomitant]
     Indication: CONSTIPATION
     Dosage: 100MG AS REQUIRED
     Route: 048
     Dates: start: 20110321
  7. BENADRYL [Concomitant]
     Indication: TRANSFUSION
     Dosage: 12.5MG SINGLE DOSE
     Route: 042
     Dates: start: 20110321, end: 20110321
  8. ELTROMBOPAG [Suspect]
     Indication: THROMBOCYTOPENIA
     Route: 048
     Dates: start: 20110126

REACTIONS (1)
  - PYREXIA [None]
